FAERS Safety Report 23303570 (Version 1)
Quarter: 2023Q4

REPORT INFORMATION
  Report Type: Spontaneous
  Country: US (occurrence: None)
  Receive Date: 20231215
  Receipt Date: 20231215
  Transmission Date: 20240109
  Serious: Yes (Life-Threatening, Hospitalization)
  Sender: FDA-Public Use
  Company Number: None

PATIENT
  Age: 45 Year
  Sex: Female
  Weight: 59.4 kg

DRUGS (4)
  1. ABEMACICLIB [Suspect]
     Active Substance: ABEMACICLIB
     Indication: Breast cancer
     Dosage: FREQUENCY : TWICE A DAY;?
     Route: 048
  2. METFORMIN [Suspect]
     Active Substance: METFORMIN HYDROCHLORIDE
     Dosage: FREQUENCY : TWICE A DAY;?
     Route: 048
     Dates: start: 20200501, end: 20231120
  3. ABEMACICLIB [Concomitant]
     Active Substance: ABEMACICLIB
     Dates: start: 202311, end: 20231122
  4. METFORMIN [Concomitant]
     Active Substance: METFORMIN HYDROCHLORIDE
     Dates: start: 20200501, end: 20231122

REACTIONS (5)
  - Product use issue [None]
  - Lactic acidosis [None]
  - Acute kidney injury [None]
  - Hypercalcaemia [None]
  - Anaemia [None]

NARRATIVE: CASE EVENT DATE: 20231101
